FAERS Safety Report 8258120-X (Version None)
Quarter: 2012Q1

REPORT INFORMATION
  Report Type: 
  Country: None (occurrence: None)
  Receive Date: 20120322
  Receipt Date: 20120131
  Transmission Date: 20120608
  Serious: Yes (Hospitalization)
  Sender: FDA-Public Use
  Company Number: UTC-014740

PATIENT
  Age: 62 Year
  Sex: Male
  Weight: 77.27 kg

DRUGS (2)
  1. TYVASO [Suspect]
     Indication: COR PULMONALE CHRONIC
     Dosage: 18 TO 54 MICROGRAMS (4 IN 1 D),INHALATION
     Route: 055
     Dates: start: 20110801
  2. REVATIO [Concomitant]

REACTIONS (2)
  - LIVER DISORDER [None]
  - CIRRHOSIS ALCOHOLIC [None]
